FAERS Safety Report 14527842 (Version 1)
Quarter: 2018Q1

REPORT INFORMATION
  Report Type: Spontaneous
  Country: US (occurrence: US)
  Receive Date: 20180213
  Receipt Date: 20180213
  Transmission Date: 20180509
  Serious: Yes (Hospitalization)
  Sender: FDA-Public Use
  Company Number: US-EXELIXIS-CABO-18012335

PATIENT
  Age: 68 Year
  Sex: Male

DRUGS (3)
  1. MIRALAX [Suspect]
     Active Substance: POLYETHYLENE GLYCOL 3350
     Indication: CONSTIPATION
     Dosage: UNK UNK, Q2HR
     Dates: start: 20180202, end: 20180202
  2. LOSARTAN. [Concomitant]
     Active Substance: LOSARTAN
  3. CABOMETYX [Suspect]
     Active Substance: CABOZANTINIB S-MALATE
     Indication: RENAL CELL CARCINOMA
     Dosage: 60 MG, QD
     Route: 048
     Dates: start: 20180125

REACTIONS (5)
  - Diverticulum [Unknown]
  - Diarrhoea [Not Recovered/Not Resolved]
  - Anuria [Recovered/Resolved]
  - Faecaloma [Unknown]
  - Catheter site haemorrhage [Unknown]

NARRATIVE: CASE EVENT DATE: 20180202
